FAERS Safety Report 8925837 (Version 1)
Quarter: 2012Q4

REPORT INFORMATION
  Report Type: 
  Country: US (occurrence: US)
  Receive Date: 20121126
  Receipt Date: 20121126
  Transmission Date: 20130627
  Serious: Yes (Other)
  Sender: FDA-Public Use
  Company Number: PHEH2012US023022

PATIENT
  Sex: Male
  Weight: 95.24 kg

DRUGS (1)
  1. GLEEVEC [Suspect]
     Indication: GASTRIC CANCER
     Dosage: 400 mg, daily
     Route: 048
     Dates: start: 20120711

REACTIONS (2)
  - Sarcoma [Unknown]
  - Second primary malignancy [Unknown]
